FAERS Safety Report 22387619 (Version 1)
Quarter: 2023Q2

REPORT INFORMATION
  Report Type: Spontaneous
  Country: US (occurrence: None)
  Receive Date: 20230530
  Receipt Date: 20230530
  Transmission Date: 20230722
  Serious: No
  Sender: FDA-Public Use
  Company Number: None

PATIENT
  Age: 51 Year
  Sex: Male
  Weight: 86.18 kg

DRUGS (1)
  1. HERBALS\TETRAHYDROCANNABINOL MIXED [Suspect]
     Active Substance: HERBALS\TETRAHYDROCANNABINOL MIXED
     Dosage: FREQUENCY : DAILY;?
     Route: 055

REACTIONS (3)
  - Wheezing [None]
  - Dyspnoea [None]
  - Product formulation issue [None]

NARRATIVE: CASE EVENT DATE: 20230502
